FAERS Safety Report 9551977 (Version 1)
Quarter: 2013Q3

REPORT INFORMATION
  Report Type: Spontaneous
  Country: FR (occurrence: FR)
  Receive Date: 20130925
  Receipt Date: 20130925
  Transmission Date: 20140515
  Serious: Yes (Hospitalization)
  Sender: FDA-Public Use
  Company Number: FR-SANOFI-AVENTIS-2013SA093052

PATIENT
  Age: 83 Year
  Sex: Male

DRUGS (5)
  1. PLAVIX [Suspect]
     Indication: PROPHYLAXIS
     Route: 065
     Dates: end: 20120701
  2. SERESTA [Concomitant]
  3. AMOXICILLIN [Concomitant]
     Dates: end: 20120713
  4. ATENOLOL [Concomitant]
  5. SIMVASTATIN [Concomitant]

REACTIONS (2)
  - Skull fractured base [Recovered/Resolved]
  - Subdural haematoma [Recovered/Resolved]
